FAERS Safety Report 16836392 (Version 1)
Quarter: 2019Q3

REPORT INFORMATION
  Report Type: Spontaneous
  Country: DE (occurrence: DE)
  Receive Date: 20190921
  Receipt Date: 20190921
  Transmission Date: 20191005
  Serious: Yes (Death, Other)
  Sender: FDA-Public Use
  Company Number: DE-B.I. PHARMACEUTICALS,INC./RIDGEFIELD-2019-BI-103399

PATIENT
  Age: 66 Year
  Sex: Female

DRUGS (2)
  1. GILOTRIF [Suspect]
     Active Substance: AFATINIB
     Indication: EGFR GENE MUTATION
  2. GILOTRIF [Suspect]
     Active Substance: AFATINIB
     Indication: BRONCHIAL CARCINOMA
     Route: 065

REACTIONS (11)
  - Nausea [Unknown]
  - Skin disorder [Unknown]
  - Metastases to central nervous system [Unknown]
  - Gait disturbance [Unknown]
  - Radiotherapy [Unknown]
  - Headache [Unknown]
  - Death [Fatal]
  - Meningism [Unknown]
  - Metastases to meninges [Unknown]
  - Dizziness [Unknown]
  - Speech sound disorder [Unknown]

NARRATIVE: CASE EVENT DATE: 201801
